FAERS Safety Report 7988338-2 (Version None)
Quarter: 2011Q4

REPORT INFORMATION
  Report Type: 
  Country: None (occurrence: None)
  Receive Date: 20111216
  Receipt Date: 20111209
  Transmission Date: 20120403
  Serious: Yes (Hospitalization, Disabling, Other)
  Sender: FDA-Public Use
  Company Number: BR-ABBOTT-11P-020-0882142-00

PATIENT
  Sex: Female
  Weight: 74 kg

DRUGS (5)
  1. HUMIRA [Suspect]
     Indication: RHEUMATOID ARTHRITIS
     Route: 058
  2. COMBINED MEDICATION [Concomitant]
     Indication: RHEUMATOID ARTHRITIS
     Dosage: DIAZEPINE 50 MG/ VITAMIN B12 1000 MCG/ CYCLOBENZAPRINE 5 MG
     Route: 048
  3. VITAMIN B COMPLEX CAP [Concomitant]
     Indication: VITAMIN SUPPLEMENTATION
     Route: 048
  4. ISOFLAVONE [Concomitant]
     Indication: RHEUMATOID ARTHRITIS
     Route: 048
  5. NUTRICAL D [Concomitant]
     Indication: BONE DISORDER
     Route: 048

REACTIONS (6)
  - CONFUSIONAL STATE [None]
  - TRISMUS [None]
  - CEREBROVASCULAR ACCIDENT [None]
  - APHASIA [None]
  - HYPERTENSION [None]
  - HEMIPLEGIA [None]
